FAERS Safety Report 17196841 (Version 1)
Quarter: 2019Q4

REPORT INFORMATION
  Report Type: Spontaneous
  Country: US (occurrence: US)
  Receive Date: 20191224
  Receipt Date: 20191224
  Transmission Date: 20200122
  Serious: No
  Sender: FDA-Public Use
  Company Number: US-GILEAD-2019-0444299

PATIENT
  Sex: Female

DRUGS (4)
  1. PREZISTA [Concomitant]
     Active Substance: DARUNAVIR ETHANOLATE
  2. PRENATAL 1+1 FE [Concomitant]
  3. ALBUTEIN [Concomitant]
     Active Substance: ALBUMIN HUMAN
  4. DESCOVY [Suspect]
     Active Substance: EMTRICITABINE\TENOFOVIR ALAFENAMIDE FUMARATE
     Indication: HIV INFECTION
     Dosage: 200/25MG
     Route: 048

REACTIONS (1)
  - Product dose omission [Unknown]
